FAERS Safety Report 6379366-1 (Version None)
Quarter: 2009Q3

REPORT INFORMATION
  Report Type: 
  Country: None (occurrence: None)
  Receive Date: 20090923
  Receipt Date: 20090923
  Transmission Date: 20100115
  Serious: Yes (Hospitalization)
  Sender: FDA-Public Use
  Company Number: None

PATIENT
  Age: 80 Year
  Sex: Male
  Weight: 109 kg

DRUGS (13)
  1. ENOXAPARIN SODIUM [Suspect]
     Indication: ATRIAL FIBRILLATION
     Dosage: 120MG BID SUBQ
     Route: 058
     Dates: start: 20080401, end: 20081117
  2. ENOXAPARIN SODIUM [Suspect]
     Indication: DEEP VEIN THROMBOSIS
     Dosage: 120MG BID SUBQ
     Route: 058
     Dates: start: 20080401, end: 20081117
  3. PRIMIDONE [Concomitant]
  4. ASPIRIN [Concomitant]
  5. ATROPINE EYE DROP [Concomitant]
  6. AMLODIPINE [Concomitant]
  7. MOXIFLOXACIN HCL [Concomitant]
  8. PREDNISOLONE EYE DROP [Concomitant]
  9. ATORVASTATIN [Concomitant]
  10. BRIMIDONE EYE DROP [Concomitant]
  11. OMEPRAZOLE [Concomitant]
  12. COSOPT [Concomitant]
  13. LEVOBUNOLOL EYE DROP [Concomitant]

REACTIONS (6)
  - ABDOMINAL PAIN [None]
  - FALL [None]
  - HAEMOGLOBIN DECREASED [None]
  - PERITONEAL HAEMORRHAGE [None]
  - SYNCOPE [None]
  - UNEVALUABLE EVENT [None]
